FAERS Safety Report 25683225 (Version 2)
Quarter: 2025Q4

REPORT INFORMATION
  Report Type: Report from Study
  Country: US (occurrence: US)
  Receive Date: 20250814
  Receipt Date: 20251223
  Transmission Date: 20260117
  Serious: Yes (Other)
  Sender: ABBVIE
  Company Number: US-ABBVIE-6264481

PATIENT
  Sex: Female
  Weight: 73 kg

DRUGS (2)
  1. SKYRIZI [Suspect]
     Active Substance: RISANKIZUMAB-RZAA
     Indication: Crohn^s disease
     Route: 058
     Dates: start: 202309
  2. VITAMINS [Concomitant]
     Active Substance: VITAMINS
     Indication: Pregnancy
     Route: 048

REACTIONS (4)
  - Placenta praevia [Recovered/Resolved]
  - Maternal exposure during pregnancy [Unknown]
  - Gestational diabetes [Not Recovered/Not Resolved]
  - Live birth [Unknown]

NARRATIVE: CASE EVENT DATE: 20250619
